FAERS Safety Report 18377542 (Version 4)
Quarter: 2024Q1

REPORT INFORMATION
  Report Type: Spontaneous
  Country: US (occurrence: US)
  Receive Date: 20201013
  Receipt Date: 20240315
  Transmission Date: 20240409
  Serious: Yes (Hospitalization, Other)
  Sender: FDA-Public Use
  Company Number: US-AMNEAL PHARMACEUTICALS-2020-AMRX-03126

PATIENT
  Age: 38 Year
  Sex: Female
  Weight: 86 kg

DRUGS (13)
  1. ACTIVELLA [Suspect]
     Active Substance: ESTRADIOL\NORETHINDRONE ACETATE
     Indication: Endometriosis
     Dosage: 1 DOSAGE FORM, 1X/DAY
     Route: 048
     Dates: start: 20190123, end: 20191220
  2. ACTIVELLA [Suspect]
     Active Substance: ESTRADIOL\NORETHINDRONE ACETATE
     Dosage: 1 DOSAGE FORM, 1X/DAY
     Route: 048
     Dates: start: 20191220, end: 20200906
  3. ACTIVELLA [Suspect]
     Active Substance: ESTRADIOL\NORETHINDRONE ACETATE
     Dosage: 1 DOSAGE FORM, 1X/DAY
     Route: 048
     Dates: start: 20200909
  4. ELAGOLIX [Suspect]
     Active Substance: ELAGOLIX
     Indication: Endometriosis
     Dosage: 200 MILLIGRAM, 2X/DAY
     Route: 048
     Dates: start: 20190123, end: 20191220
  5. ELAGOLIX [Suspect]
     Active Substance: ELAGOLIX
     Dosage: 200 MILLIGRAM, 2X/DAY
     Route: 048
     Dates: start: 20191220, end: 20200906
  6. ELAGOLIX [Suspect]
     Active Substance: ELAGOLIX
     Dosage: 200 MILLIGRAM, 2X/DAY
     Route: 048
     Dates: start: 20200909
  7. CETIRIZINE HYDROCHLORIDE [Concomitant]
     Active Substance: CETIRIZINE HYDROCHLORIDE
     Indication: Seasonal allergy
     Dosage: 10 MILLIGRAM, DAILY
     Route: 048
     Dates: start: 20130130
  8. ACETAMINOPHEN\ASPIRIN\CAFFEINE\SALICYLAMIDE [Concomitant]
     Active Substance: ACETAMINOPHEN\ASPIRIN\CAFFEINE\SALICYLAMIDE
     Indication: Migraine
     Dosage: 250/250 AS REQUIRED
     Route: 048
     Dates: start: 20080130
  9. CYCLOBENZAPRINE [Concomitant]
     Active Substance: CYCLOBENZAPRINE
     Indication: Back pain
     Dosage: 10 MG AS REQUIRED
     Route: 048
     Dates: start: 20181105
  10. CYCLOBENZAPRINE [Concomitant]
     Active Substance: CYCLOBENZAPRINE
     Indication: Scoliosis
     Dosage: 1 TABLETS, DAILY
     Route: 048
     Dates: start: 20200826, end: 20200830
  11. CHOLECALCIFEROL [Concomitant]
     Active Substance: CHOLECALCIFEROL
     Indication: Vitamin D deficiency
     Dosage: 5000 INTERNATIONAL UNIT, 1X/DAY
     Route: 048
     Dates: start: 20181205
  12. PAROXETINE [Concomitant]
     Active Substance: PAROXETINE
     Indication: Dysphoria
     Dosage: 10 MILLIGRAM, 1X/DAY
     Route: 048
     Dates: start: 20181212
  13. TRAMADOL [Concomitant]
     Active Substance: TRAMADOL\TRAMADOL HYDROCHLORIDE
     Indication: Scoliosis
     Dosage: 50 MILLIGRAM, 1X/DAY
     Route: 048
     Dates: start: 20200826, end: 20200826

REACTIONS (1)
  - Cholecystitis [Recovered/Resolved]

NARRATIVE: CASE EVENT DATE: 20200907
